FAERS Safety Report 21903538 (Version 1)
Quarter: 2023Q1

REPORT INFORMATION
  Report Type: Spontaneous
  Country: US (occurrence: US)
  Receive Date: 20230124
  Receipt Date: 20230124
  Transmission Date: 20230418
  Serious: Yes (Disabling)
  Sender: FDA-Public Use
  Company Number: US-009507513-2301USA007665

PATIENT
  Sex: Female
  Weight: 52.8 kg

DRUGS (1)
  1. KEYTRUDA [Suspect]
     Active Substance: PEMBROLIZUMAB
     Indication: Renal cancer
     Dosage: 200 MILLIGRAM, Q3W
     Route: 042
     Dates: start: 20220815

REACTIONS (2)
  - Keratitis [Recovered/Resolved with Sequelae]
  - Ocular toxicity [Unknown]

NARRATIVE: CASE EVENT DATE: 20220101
